FAERS Safety Report 9511008 (Version 1)
Quarter: 2013Q3

REPORT INFORMATION
  Report Type: Spontaneous
  Country: US (occurrence: None)
  Receive Date: 20130909
  Receipt Date: 20130909
  Transmission Date: 20140515
  Serious: Yes (Other)
  Sender: FDA-Public Use
  Company Number: None

PATIENT
  Age: 69 Year
  Sex: Female
  Weight: 68.95 kg

DRUGS (1)
  1. EXJADE 500MG NOVARTIS [Suspect]
     Route: 048
     Dates: start: 20120720

REACTIONS (1)
  - Renal impairment [None]
